FAERS Safety Report 4998347-3 (Version None)
Quarter: 2006Q2

REPORT INFORMATION
  Report Type: 
  Country: None (occurrence: None)
  Receive Date: 20060510
  Receipt Date: 20060428
  Transmission Date: 20061013
  Serious: Yes (Death, Hospitalization)
  Sender: FDA-Public Use
  Company Number: PHBS2006AT06748

PATIENT
  Age: 59 Year
  Sex: Male

DRUGS (5)
  1. CYCLOSPORINE [Suspect]
     Indication: HEART TRANSPLANT
     Route: 065
  2. AZATHIOPRINE [Suspect]
     Indication: HEART TRANSPLANT
     Route: 065
  3. PREDNISOLONE [Suspect]
     Indication: HEART TRANSPLANT
     Route: 048
  4. METHYLPREDNISOLONE [Suspect]
     Indication: HEART TRANSPLANT
     Dosage: 500 MG/D
  5. MONOCLONAL ANTIBODIES [Concomitant]
     Indication: HEART TRANSPLANT

REACTIONS (35)
  - ACTIVATED PARTIAL THROMBOPLASTIN TIME PROLONGED [None]
  - ALANINE AMINOTRANSFERASE INCREASED [None]
  - ANTITHROMBIN III INCREASED [None]
  - ASPARTATE AMINOTRANSFERASE INCREASED [None]
  - BLOOD ALKALINE PHOSPHATASE INCREASED [None]
  - BLOOD BILIRUBIN INCREASED [None]
  - BLOOD FIBRINOGEN DECREASED [None]
  - BLOOD THROMBOPLASTIN INCREASED [None]
  - CHILLS [None]
  - COAGULOPATHY [None]
  - DIFFUSE LARGE B-CELL LYMPHOMA [None]
  - ENTEROCOCCAL INFECTION [None]
  - EPSTEIN-BARR VIRUS INFECTION [None]
  - FUNGAL OESOPHAGITIS [None]
  - GASTRIC MUCOSAL LESION [None]
  - GASTROINTESTINAL HAEMORRHAGE [None]
  - HAEMODIALYSIS [None]
  - HAEMOGLOBIN DECREASED [None]
  - HEPATIC FUNCTION ABNORMAL [None]
  - HEPATIC PAIN [None]
  - LEUKOPENIA [None]
  - LYMPHADENOPATHY MEDIASTINAL [None]
  - LYMPHOPROLIFERATIVE DISORDER [None]
  - MULTI-ORGAN FAILURE [None]
  - NODULE [None]
  - OEDEMA [None]
  - OLIGURIA [None]
  - PALLOR [None]
  - PLATELET COUNT DECREASED [None]
  - PLEURAL EFFUSION [None]
  - PYREXIA [None]
  - RECTAL HAEMORRHAGE [None]
  - RED BLOOD CELL COUNT DECREASED [None]
  - STAPHYLOCOCCAL SEPSIS [None]
  - TACHYCARDIA [None]
